FAERS Safety Report 7732231-7 (Version None)
Quarter: 2011Q3

REPORT INFORMATION
  Report Type: 
  Country: None (occurrence: None)
  Receive Date: 20110906
  Receipt Date: 20110826
  Transmission Date: 20111222
  Serious: Yes (Hospitalization, Disabling, Other)
  Sender: FDA-Public Use
  Company Number: ZA-ELI_LILLY_AND_COMPANY-ZA201108005640

PATIENT
  Sex: Male

DRUGS (5)
  1. BYETTA [Suspect]
     Indication: DIABETES MELLITUS
     Dosage: 5 UG, UNK
     Dates: start: 20110401, end: 20110501
  2. INSULIN [Concomitant]
  3. LASIX [Concomitant]
     Indication: BLOOD CHOLESTEROL
  4. BYETTA [Suspect]
     Dosage: 10 UG, UNK
     Dates: start: 20110501, end: 20110601
  5. CORTISONE ACETATE [Concomitant]

REACTIONS (7)
  - SPLENITIS [None]
  - CHOLELITHIASIS [None]
  - ANAEMIA HAEMOLYTIC AUTOIMMUNE [None]
  - GENERAL PHYSICAL HEALTH DETERIORATION [None]
  - VOMITING [None]
  - NAUSEA [None]
  - JAUNDICE [None]
